FAERS Safety Report 9601975 (Version 2)
Quarter: 2013Q4

REPORT INFORMATION
  Report Type: Spontaneous
  Country: IT (occurrence: IT)
  Receive Date: 20131007
  Receipt Date: 20131007
  Transmission Date: 20140711
  Serious: Yes (Hospitalization)
  Sender: FDA-Public Use
  Company Number: PHHY2013IT109223

PATIENT
  Age: 73 Year
  Sex: Male

DRUGS (2)
  1. DICLOFENAC [Suspect]
     Indication: BACK PAIN
     Dosage: 100 MG PER DAY
     Route: 048
     Dates: start: 20130520, end: 20130527
  2. PREDNISONE [Suspect]
     Indication: BACK PAIN
     Dosage: 5 MG PER DAY
     Route: 048
     Dates: start: 20130520, end: 20130527

REACTIONS (3)
  - Anaemia [Recovered/Resolved]
  - Duodenal ulcer [Recovered/Resolved]
  - Intestinal haemorrhage [Unknown]
